FAERS Safety Report 21274605 (Version 1)
Quarter: 2022Q3

REPORT INFORMATION
  Report Type: Spontaneous
  Country: CA (occurrence: CA)
  Receive Date: 20220831
  Receipt Date: 20220831
  Transmission Date: 20221026
  Serious: Yes (Death, Hospitalization, Other)
  Sender: FDA-Public Use
  Company Number: CA-SAMSUNG BIOEPIS-SB-2022-21508

PATIENT
  Age: 80 Year
  Sex: Male

DRUGS (1)
  1. INFLIXIMAB [Suspect]
     Active Substance: INFLIXIMAB
     Indication: Colitis ulcerative
     Route: 042

REACTIONS (10)
  - Death [Fatal]
  - Cardiac failure congestive [Fatal]
  - Disease progression [Fatal]
  - Dyspnoea [Fatal]
  - Fatigue [Fatal]
  - Fluid retention [Fatal]
  - Infection [Fatal]
  - Pulmonary thrombosis [Fatal]
  - Renal disorder [Fatal]
  - Thrombosis [Fatal]
